FAERS Safety Report 25545920 (Version 3)
Quarter: 2025Q3

REPORT INFORMATION
  Report Type: Spontaneous
  Country: US (occurrence: US)
  Receive Date: 20250712
  Receipt Date: 20250927
  Transmission Date: 20251020
  Serious: Yes (Death, Other)
  Sender: SANOFI AVENTIS
  Company Number: US-SA-2025SA196488

PATIENT
  Age: 72 Year
  Sex: Male

DRUGS (11)
  1. DUPIXENT [Suspect]
     Active Substance: DUPILUMAB
     Indication: Chronic obstructive pulmonary disease
     Dosage: 300 MG, QOW
     Route: 058
     Dates: start: 202505, end: 2025
  2. AMOXICILLIN [Concomitant]
     Active Substance: AMOXICILLIN
  3. ATORVASTATIN [Concomitant]
     Active Substance: ATORVASTATIN
  4. AZITHROMYCIN [Concomitant]
     Active Substance: AZITHROMYCIN
  5. CLOPIDOGREL [Concomitant]
     Active Substance: CLOPIDOGREL BISULFATE
  6. HYDROXYZINE [Concomitant]
     Active Substance: HYDROXYZINE HYDROCHLORIDE
  7. IPRATROPIUM [Concomitant]
     Active Substance: IPRATROPIUM
  8. METOPROLOL [Concomitant]
     Active Substance: METOPROLOL
  9. MONTELUKAST [Concomitant]
     Active Substance: MONTELUKAST
  10. PREDNISONE [Concomitant]
     Active Substance: PREDNISONE
  11. TRELEGY ELLIPTA [Concomitant]
     Active Substance: FLUTICASONE FUROATE\UMECLIDINIUM BROMIDE\VILANTEROL TRIFENATATE

REACTIONS (2)
  - Death [Fatal]
  - Initial insomnia [Not Recovered/Not Resolved]

NARRATIVE: CASE EVENT DATE: 20250101
